FAERS Safety Report 5071623-4 (Version None)
Quarter: 2006Q3

REPORT INFORMATION
  Report Type: 
  Country: None (occurrence: None)
  Receive Date: 20060803
  Receipt Date: 20060803
  Transmission Date: 20061208
  Serious: Yes (Hospitalization)
  Sender: FDA-Public Use
  Company Number: None

PATIENT
  Sex: Male
  Weight: 93.3 kg

DRUGS (2)
  1. XELODA [Suspect]
     Dosage: 70000 MG
  2. CAMPTOSAR [Suspect]
     Dosage: 418 MG

REACTIONS (2)
  - PULMONARY EMBOLISM [None]
  - PYREXIA [None]
